FAERS Safety Report 5477217-0 (Version None)
Quarter: 2007Q4

REPORT INFORMATION
  Report Type: 
  Country: None (occurrence: None)
  Receive Date: 20071004
  Receipt Date: 20071001
  Transmission Date: 20080405
  Serious: Yes (Other)
  Sender: FDA-Public Use
  Company Number: D0054549A

PATIENT
  Age: 33 Year
  Sex: Female
  Weight: 77 kg

DRUGS (2)
  1. LAMICTAL [Suspect]
     Indication: EPILEPSY
     Dosage: 50MG TWICE PER DAY
     Route: 048
     Dates: start: 20030301
  2. FOLIC ACID [Concomitant]
     Dosage: 5MG PER DAY
     Route: 048
     Dates: start: 20030501

REACTIONS (4)
  - ABORTION MISSED [None]
  - DRUG EXPOSURE DURING PREGNANCY [None]
  - UTERINE DILATION AND CURETTAGE [None]
  - VAGINAL HAEMORRHAGE [None]
